FAERS Safety Report 15427829 (Version 1)
Quarter: 2018Q3

REPORT INFORMATION
  Report Type: Spontaneous
  Country: IT (occurrence: IT)
  Receive Date: 20180926
  Receipt Date: 20180926
  Transmission Date: 20181010
  Serious: Yes (Death, Other)
  Sender: FDA-Public Use
  Company Number: IT-SUN PHARMACEUTICAL INDUSTRIES LTD-2018RR-185336

PATIENT
  Sex: Male

DRUGS (7)
  1. CAPECITABINE. [Suspect]
     Active Substance: CAPECITABINE
     Indication: NEUROENDOCRINE TUMOUR OF THE LUNG METASTATIC
     Dosage: 750 MG/M2, BID, ON DAYS 1? 14, THREE CYCLES, THIRD LINE TREATMENT
     Route: 048
     Dates: start: 20140410, end: 20170703
  2. TOPOTECAN [Suspect]
     Active Substance: TOPOTECAN HYDROCHLORIDE
     Indication: NEUROENDOCRINE TUMOUR OF THE LUNG METASTATIC
     Dosage: 2 MG/M2, WEEKLY, SECOND LINE CHEMOTHERAPY
     Route: 065
     Dates: start: 20161229, end: 20170510
  3. ZOLEDRONIC ACID [Suspect]
     Active Substance: ZOLEDRONIC ACID
     Indication: NEUROENDOCRINE TUMOUR OF THE LUNG METASTATIC
     Dosage: 4 MG, UNK
     Route: 065
     Dates: start: 20160704, end: 20161118
  4. CISPLATIN. [Suspect]
     Active Substance: CISPLATIN
     Indication: NEUROENDOCRINE TUMOUR OF THE LUNG METASTATIC
     Dosage: 75 MG/M2, SIX CYCLES, ON DAYS 1?3 EVERY 3 WEEKS
     Route: 065
     Dates: start: 20160704, end: 20161118
  5. SANDOSTATIN [Suspect]
     Active Substance: OCTREOTIDE ACETATE
     Indication: NEUROENDOCRINE TUMOUR OF THE LUNG METASTATIC
     Dosage: 30 MG, LONG?ACTING
     Route: 030
     Dates: start: 20160704, end: 20161118
  6. TEMOZOLOMIDE. [Suspect]
     Active Substance: TEMOZOLOMIDE
     Indication: NEUROENDOCRINE TUMOUR OF THE LUNG METASTATIC
     Dosage: 125 MG/M2, ON DAYS 10?14, THREE CYCLES, THIRD LINE TREATMENT
     Route: 048
     Dates: start: 20140410, end: 20170703
  7. ETOPOSIDE. [Suspect]
     Active Substance: ETOPOSIDE
     Indication: NEUROENDOCRINE TUMOUR OF THE LUNG METASTATIC
     Dosage: 100 MG/M2, SIX CYCLES, ON DAYS 1?3 EVERY 3 WEEKS
     Route: 065
     Dates: start: 20160704, end: 20161118

REACTIONS (4)
  - Disease progression [Unknown]
  - Respiratory failure [Fatal]
  - Therapy partial responder [Unknown]
  - Off label use [Unknown]

NARRATIVE: CASE EVENT DATE: 201708
